FAERS Safety Report 6566769-5 (Version None)
Quarter: 2010Q1

REPORT INFORMATION
  Report Type: 
  Country: None (occurrence: None)
  Receive Date: 20100202
  Receipt Date: 20100126
  Transmission Date: 20100710
  Serious: Yes (Other)
  Sender: FDA-Public Use
  Company Number: US-PFIZER INC-2009222986

PATIENT
  Sex: Male
  Weight: 72.562 kg

DRUGS (2)
  1. CHANTIX [Suspect]
     Indication: SMOKING CESSATION THERAPY
     Dosage: 0.5 MG, 1X/DAY
     Route: 048
     Dates: start: 20090527, end: 20090529
  2. VICOPROFEN [Concomitant]
     Dosage: UNK
     Dates: start: 20090430, end: 20090528

REACTIONS (6)
  - CONFUSIONAL STATE [None]
  - CONTUSION [None]
  - EPISTAXIS [None]
  - JOINT SPRAIN [None]
  - LETHARGY [None]
  - SYNCOPE [None]
